FAERS Safety Report 8112398-1 (Version None)
Quarter: 2011Q4

REPORT INFORMATION
  Report Type: 
  Country: None (occurrence: None)
  Receive Date: 20111223
  Receipt Date: 20110309
  Transmission Date: 20120403
  Serious: Yes (Hospitalization)
  Sender: FDA-Public Use
  Company Number: PHHY2011US19332

PATIENT
  Age: 35 Year
  Sex: Male

DRUGS (7)
  1. NICOTINE [Concomitant]
  2. REQUIP [Concomitant]
  3. DEPAKOTE [Concomitant]
  4. CLOZARIL [Suspect]
     Indication: SCHIZOAFFECTIVE DISORDER
     Dosage: 200 MG IN MORNING AND 700 MG AT NIGHT : 600 MG
  5. KLONOPIN [Concomitant]
  6. TERAZOSIN HCL [Concomitant]
  7. FENOFIBRATE [Concomitant]

REACTIONS (4)
  - HEAD BANGING [None]
  - DROOLING [None]
  - SCHIZOAFFECTIVE DISORDER [None]
  - PSYCHOTIC DISORDER [None]
